FAERS Safety Report 5083438-1 (Version None)
Quarter: 2006Q3

REPORT INFORMATION
  Report Type: 
  Country: None (occurrence: None)
  Receive Date: 20060818
  Receipt Date: 20060721
  Transmission Date: 20061208
  Serious: Yes (Other)
  Sender: FDA-Public Use
  Company Number: PHEH2006US09413

PATIENT
  Age: 61 Year
  Sex: Male
  Weight: 81.179 kg

DRUGS (7)
  1. ZOMETA [Suspect]
     Indication: METASTASES TO BONE
     Dosage: UNK, UNK
     Dates: start: 20060306
  2. TAXOTERE [Concomitant]
     Dosage: 45 MG, UNK
     Dates: start: 20060306
  3. CARBOPLATIN [Concomitant]
     Dosage: 198 MG, UNK
     Dates: start: 20060306
  4. DECADRON [Concomitant]
     Dosage: 20 MG, UNK
     Route: 042
  5. CORTICOSTEROIDS [Concomitant]
  6. RADIOTHERAPY [Concomitant]
     Dosage: 5940 CGY
     Dates: start: 20060306, end: 20060424
  7. RADIOTHERAPY [Concomitant]
     Dosage: 3000 CGY
     Dates: start: 20060411, end: 20060429

REACTIONS (9)
  - BONE DISORDER [None]
  - GINGIVAL INFECTION [None]
  - MOUTH ULCERATION [None]
  - ORAL PAIN [None]
  - OSTEONECROSIS [None]
  - SOFT TISSUE INFECTION [None]
  - STOMATITIS [None]
  - SWELLING [None]
  - WOUND DEBRIDEMENT [None]
